FAERS Safety Report 8089843 (Version 2)
Quarter: 2013Q1

REPORT INFORMATION
  Report Type: Spontaneous
  Country: US (occurrence: US)
  Receive Date: 20110815
  Receipt Date: 20130109
  Transmission Date: 20140127
  Serious: Yes (Other)
  Sender: FDA-Public Use
  Company Number: US-ROCHE-778335

PATIENT
  Age: 14 Year
  Sex: Male
  Weight: 99.8 kg

DRUGS (1)
  1. ACCUTANE [Suspect]
     Indication: ACNE
     Dosage: 40 MG 11 CAPSULES PER WEEK
     Route: 048
     Dates: start: 200104, end: 200109

REACTIONS (4)
  - Crohn^s disease [Unknown]
  - Colitis [Unknown]
  - Anal fissure [Unknown]
  - Blood triglycerides increased [Unknown]
